FAERS Safety Report 10121028 (Version 1)
Quarter: 2014Q2

REPORT INFORMATION
  Report Type: Spontaneous
  Country: US (occurrence: US)
  Receive Date: 20140425
  Receipt Date: 20140425
  Transmission Date: 20141212
  Serious: No
  Sender: FDA-Public Use
  Company Number: US-009507513-1404USA012675

PATIENT
  Sex: Male
  Weight: 94.33 kg

DRUGS (3)
  1. ZOCOR [Suspect]
     Indication: BLOOD CHOLESTEROL INCREASED
     Dosage: 10 MG, DAILY
     Route: 048
  2. VERAPAMIL [Concomitant]
     Indication: HYPERTENSION
     Dosage: 120 MG,DAILY
  3. AVAPRO [Concomitant]
     Indication: HYPERTENSION
     Dosage: 150 MG, DAILY

REACTIONS (2)
  - Gait disturbance [Unknown]
  - Myalgia [Unknown]
